FAERS Safety Report 24032255 (Version 1)
Quarter: 2024Q3

REPORT INFORMATION
  Report Type: Report from Study
  Country: None (occurrence: None)
  Receive Date: 20240408
  Receipt Date: 20240408
  Transmission Date: 20241016
  Serious: No
  Sender: STANFORD UNIV MEDCTR
  Company Number: None

PATIENT

DRUGS (1)
  1. DEVICE [Suspect]
     Active Substance: DEVICE
     Indication: Pancreatic carcinoma

REACTIONS (1)
  - Obstruction gastric [None]
